FAERS Safety Report 20370115 (Version 4)
Quarter: 2022Q1

REPORT INFORMATION
  Report Type: Spontaneous
  Country: CN (occurrence: CN)
  Receive Date: 20220124
  Receipt Date: 20220331
  Transmission Date: 20220423
  Serious: Yes (Death, Hospitalization, Other)
  Sender: FDA-Public Use
  Company Number: CN-SA-SAC20220121000894

PATIENT

DRUGS (2)
  1. ELOXATIN [Suspect]
     Active Substance: OXALIPLATIN
     Dosage: UNK
     Route: 041
     Dates: start: 202201
  2. CAPECITABINE [Suspect]
     Active Substance: CAPECITABINE
     Dosage: UNK
     Route: 048
     Dates: start: 202201

REACTIONS (6)
  - Hepatic failure [Fatal]
  - Shock [Fatal]
  - Neutropenia [Fatal]
  - Renal failure [Fatal]
  - Vomiting [Fatal]
  - Granulocytopenia [Fatal]

NARRATIVE: CASE EVENT DATE: 20220101
